FAERS Safety Report 23682184 (Version 1)
Quarter: 2024Q1

REPORT INFORMATION
  Report Type: Spontaneous
  Country: ES (occurrence: ES)
  Receive Date: 20240328
  Receipt Date: 20240328
  Transmission Date: 20240410
  Serious: Yes (Hospitalization, Other)
  Sender: FDA-Public Use
  Company Number: None

PATIENT
  Age: 53 Year
  Sex: Male

DRUGS (1)
  1. KEVZARA [Suspect]
     Active Substance: SARILUMAB
     Indication: Rheumatoid arthritis
     Dosage: 200 MG, QOW
     Route: 058
     Dates: start: 20230613, end: 20240304

REACTIONS (3)
  - Pancreatitis acute [Unknown]
  - Thrombosis [Unknown]
  - Abdominal sepsis [Not Recovered/Not Resolved]

NARRATIVE: CASE EVENT DATE: 20240224
